FAERS Safety Report 20983252 (Version 4)
Quarter: 2022Q2

REPORT INFORMATION
  Report Type: Report from Study
  Country: IL (occurrence: None)
  Receive Date: 20220620
  Receipt Date: 20220629
  Transmission Date: 20220721
  Serious: Yes (Hospitalization)
  Sender: FDA-Public Use
  Company Number: IL-Eisai Medical Research-EC-2022-117129

PATIENT
  Age: 71 Year
  Sex: Male
  Weight: 81.7 kg

DRUGS (9)
  1. LENVATINIB [Suspect]
     Active Substance: LENVATINIB
     Indication: Neoplasm
     Route: 048
     Dates: start: 20220525, end: 20220605
  2. PEMBROLIZUMAB [Suspect]
     Active Substance: PEMBROLIZUMAB
     Indication: Neoplasm
     Route: 041
     Dates: start: 20220525, end: 20220525
  3. BELZUTIFAN [Suspect]
     Active Substance: BELZUTIFAN
     Indication: Neoplasm
     Route: 048
     Dates: start: 20220525, end: 20220605
  4. BELZUTIFAN [Suspect]
     Active Substance: BELZUTIFAN
     Route: 048
     Dates: start: 20220608, end: 20220608
  5. TAMSULOSIN HYDROCHLORIDE [Concomitant]
     Active Substance: TAMSULOSIN HYDROCHLORIDE
     Dates: start: 200801
  6. AVODART [Concomitant]
     Active Substance: DUTASTERIDE
     Dates: start: 200801
  7. BISOPROLOL [Concomitant]
     Active Substance: BISOPROLOL
     Dates: start: 201701
  8. NEXIUM [Concomitant]
     Active Substance: ESOMEPRAZOLE MAGNESIUM
     Dates: start: 201701
  9. CANDESARTAN [Concomitant]
     Active Substance: CANDESARTAN
     Dates: start: 201701

REACTIONS (1)
  - Immune-mediated hepatitis [Not Recovered/Not Resolved]

NARRATIVE: CASE EVENT DATE: 20220612
